FAERS Safety Report 7339143-1 (Version None)
Quarter: 2011Q1

REPORT INFORMATION
  Report Type: 
  Country: None (occurrence: None)
  Receive Date: 20110308
  Receipt Date: 20110223
  Transmission Date: 20110831
  Serious: Yes (Other)
  Sender: FDA-Public Use
  Company Number: PHHY2011US15025

PATIENT
  Sex: Female
  Weight: 46.67 kg

DRUGS (18)
  1. PREDNISONE [Concomitant]
  2. COLACE [Concomitant]
  3. POTASSIUM [Concomitant]
  4. CITRACAL [Concomitant]
  5. MS CONTIN [Concomitant]
  6. TYLENOL [Concomitant]
  7. BISACODYL [Concomitant]
  8. METOPROLOL [Concomitant]
  9. FOSAMAX [Concomitant]
  10. VITAMIN B-12 [Concomitant]
  11. FAMOTIDINE [Concomitant]
  12. EXJADE [Suspect]
     Indication: ANAEMIA HAEMOLYTIC AUTOIMMUNE
     Dosage: 500 MG
     Route: 048
     Dates: start: 20110221
  13. CALCIUM [Concomitant]
  14. FOLIC ACID [Concomitant]
  15. CETIRIZINE HCL [Concomitant]
  16. PRILOSEC [Concomitant]
  17. ASPIRIN [Concomitant]
  18. FLAXSEED OIL [Concomitant]

REACTIONS (6)
  - NAUSEA [None]
  - HYPERHIDROSIS [None]
  - TREMOR [None]
  - DIZZINESS [None]
  - BRONCHITIS [None]
  - ASTHENIA [None]
